FAERS Safety Report 6597729-6 (Version None)
Quarter: 2010Q1

REPORT INFORMATION
  Report Type: 
  Country: None (occurrence: None)
  Receive Date: 20100216
  Receipt Date: 20100127
  Transmission Date: 20100710
  Serious: Yes (Hospitalization)
  Sender: FDA-Public Use
  Company Number: 500715

PATIENT
  Age: 46 Year
  Sex: Male

DRUGS (9)
  1. METHOTREXATE [Suspect]
     Dosage: 2820 MG, UNKNOWN, INTRAVENOUS
     Route: 042
     Dates: start: 20090319
  2. DEXAMETHASONE 4MG TAB [Suspect]
     Dosage: 20 MG, UNKNOWN, INTRAVENOUS
     Route: 042
     Dates: start: 20090220, end: 20090224
  3. (URBASON) [Concomitant]
  4. (MABTHERA) [Concomitant]
  5. (HOLOXAN) [Concomitant]
  6. VINCRISTINE [Concomitant]
  7. VUMON [Concomitant]
  8. CYTARABINE [Concomitant]
  9. (ENDOXAN) [Concomitant]

REACTIONS (2)
  - ESCHERICHIA SEPSIS [None]
  - STOMATITIS [None]
